FAERS Safety Report 8884785 (Version 1)
Quarter: 2012Q4

REPORT INFORMATION
  Report Type: 
  Country: FR (occurrence: FR)
  Receive Date: 20121102
  Receipt Date: 20121102
  Transmission Date: 20130627
  Serious: Yes (Death)
  Sender: FDA-Public Use
  Company Number: FR-ACTELION-A-CH2012-73501

PATIENT
  Age: 18 Year
  Sex: Male

DRUGS (3)
  1. TRACLEER [Suspect]
     Indication: PULMONARY ARTERIAL HYPERTENSION
     Dosage: 125 mg, bid
     Route: 048
     Dates: start: 20080206
  2. TRACLEER [Suspect]
     Dosage: 62.5 mg, bid
     Route: 048
     Dates: start: 20080109
  3. REVATIO [Concomitant]

REACTIONS (3)
  - Pulmonary arterial pressure abnormal [Fatal]
  - Pulmonary arterial hypertension [Fatal]
  - Sudden death [Fatal]
